FAERS Safety Report 8229039-5 (Version None)
Quarter: 2012Q1

REPORT INFORMATION
  Report Type: 
  Country: None (occurrence: None)
  Receive Date: 20120322
  Receipt Date: 20120315
  Transmission Date: 20120608
  Serious: Yes (Disabling)
  Sender: FDA-Public Use
  Company Number: US-MERCK-1109USA02461

PATIENT
  Age: 47 Year
  Sex: Male
  Weight: 83 kg

DRUGS (5)
  1. PROPECIA [Suspect]
     Indication: ANDROGENETIC ALOPECIA
     Route: 048
     Dates: start: 19980101, end: 20090902
  2. PROPECIA [Suspect]
     Route: 048
     Dates: start: 20090902
  3. PROPECIA [Suspect]
     Route: 065
     Dates: start: 19980101, end: 20080101
  4. PROSCAR [Suspect]
     Route: 048
     Dates: start: 20100902
  5. PROSCAR [Suspect]
     Indication: ALOPECIA
     Route: 048
     Dates: start: 19980101, end: 20080101

REACTIONS (36)
  - SEXUAL DYSFUNCTION [None]
  - EMOTIONAL DISTRESS [None]
  - PROCTALGIA [None]
  - HYPOAESTHESIA [None]
  - TESTICULAR PAIN [None]
  - DYSPNOEA EXERTIONAL [None]
  - DIPLOPIA [None]
  - DEPRESSION [None]
  - DIVERTICULUM [None]
  - ARTHROPOD BITE [None]
  - STRESS [None]
  - BENIGN PROSTATIC HYPERPLASIA [None]
  - BLOOD CHOLESTEROL INCREASED [None]
  - DRUG INEFFECTIVE [None]
  - CLAVICLE FRACTURE [None]
  - DYSPEPSIA [None]
  - VISION BLURRED [None]
  - TACHYCARDIA [None]
  - SCOTOMA [None]
  - ANGER [None]
  - PALPITATIONS [None]
  - BLOOD GLUCOSE INCREASED [None]
  - INTENTIONAL DRUG MISUSE [None]
  - HERPES ZOSTER [None]
  - CHEST PAIN [None]
  - ANGIOEDEMA [None]
  - LIVER FUNCTION TEST ABNORMAL [None]
  - HAND FRACTURE [None]
  - RHINITIS ALLERGIC [None]
  - ANXIETY [None]
  - CERUMEN IMPACTION [None]
  - DYSURIA [None]
  - MUSCULAR WEAKNESS [None]
  - WEIGHT DECREASED [None]
  - INSOMNIA [None]
  - DERMAL CYST [None]
